FAERS Safety Report 9602709 (Version 1)
Quarter: 2013Q4

REPORT INFORMATION
  Report Type: Spontaneous
  Country: IT (occurrence: None)
  Receive Date: 20131003
  Receipt Date: 20131003
  Transmission Date: 20140711
  Serious: Yes (Hospitalization)
  Sender: FDA-Public Use
  Company Number: 2013AP008338

PATIENT
  Age: 76 Year
  Sex: Male

DRUGS (3)
  1. QUETIAPINE FUMARATE (QUETIAPINE FUMARATE) [Suspect]
     Route: 048
     Dates: start: 20130501, end: 20130823
  2. MICARDIS(TELMISARTAN [Concomitant]
  3. CARDIOASPIRIN(ACETYLSALICYLIC ACID) [Concomitant]

REACTIONS (4)
  - Anaemia macrocytic [None]
  - Blood bilirubin increased [None]
  - Blood lactate dehydrogenase increased [None]
  - Haemolysis [None]
